FAERS Safety Report 22006158 (Version 2)
Quarter: 2023Q1

REPORT INFORMATION
  Report Type: Spontaneous
  Country: US (occurrence: None)
  Receive Date: 20230217
  Receipt Date: 20230314
  Transmission Date: 20230418
  Serious: Yes (Other)
  Sender: FDA-Public Use
  Company Number: 2022A393700

PATIENT
  Age: 92 Year
  Sex: Female
  Weight: 44.5 kg

DRUGS (5)
  1. BUDESONIDE\FORMOTEROL\GLYCOPYRRONIUM [Suspect]
     Active Substance: BUDESONIDE\FORMOTEROL\GLYCOPYRRONIUM
     Indication: Chronic obstructive pulmonary disease
     Dosage: UNKNOWN
     Route: 055
     Dates: start: 202204, end: 202207
  2. BUDESONIDE\FORMOTEROL\GLYCOPYRRONIUM [Suspect]
     Active Substance: BUDESONIDE\FORMOTEROL\GLYCOPYRRONIUM
     Indication: Idiopathic pulmonary fibrosis
     Dosage: UNKNOWN
     Route: 055
     Dates: start: 202204, end: 202207
  3. BEVESPI AEROSPHERE [Suspect]
     Active Substance: FORMOTEROL FUMARATE\GLYCOPYRROLATE
     Indication: Pulmonary fibrosis
     Dosage: 9 MCG, 120 INHALATIONS UNKNOWN
     Route: 055
     Dates: start: 202207
  4. BEVESPI AEROSPHERE [Suspect]
     Active Substance: FORMOTEROL FUMARATE\GLYCOPYRROLATE
     Indication: Pulmonary fibrosis
     Dosage: UNKNOWN
     Route: 055
  5. ALVESCO [Concomitant]
     Active Substance: CICLESONIDE

REACTIONS (10)
  - Pulmonary fibrosis [Recovered/Resolved]
  - Diarrhoea [Unknown]
  - Weight decreased [Unknown]
  - Decreased appetite [Unknown]
  - Chronic obstructive pulmonary disease [Recovered/Resolved]
  - Wrong technique in device usage process [Unknown]
  - Off label use [Unknown]
  - Product container issue [Unknown]
  - Intentional product misuse [Unknown]
  - Product dispensing error [Unknown]

NARRATIVE: CASE EVENT DATE: 20220701
